FAERS Safety Report 16390602 (Version 3)
Quarter: 2019Q3

REPORT INFORMATION
  Report Type: Spontaneous
  Country: JP (occurrence: JP)
  Receive Date: 20190604
  Receipt Date: 20190726
  Transmission Date: 20191004
  Serious: Yes (Hospitalization, Other)
  Sender: FDA-Public Use
  Company Number: JP-DSJP-DSJ-2019-118519

PATIENT

DRUGS (7)
  1. DONEPEZIL HYDROCHLORIDE. [Concomitant]
     Active Substance: DONEPEZIL HYDROCHLORIDE
     Dosage: 5MG/DAY
     Route: 048
  2. OLMETEC OD [Suspect]
     Active Substance: OLMESARTAN MEDOXOMIL
     Indication: HYPERTENSION
     Dosage: 10MG/DAY
     Route: 048
  3. NIFEDIPINE L [Concomitant]
     Active Substance: NIFEDIPINE
     Dosage: 20MG/DAY
     Route: 048
  4. MAGNESIUM OXIDE. [Suspect]
     Active Substance: MAGNESIUM OXIDE
     Indication: CONSTIPATION
     Dosage: 1320MG/DAY
     Route: 048
  5. TRICHLORMETHIAZIDE [Concomitant]
     Active Substance: TRICHLORMETHIAZIDE
     Dosage: 2MG/DAY
     Route: 048
  6. SENNA ALEXANDRINA FRUIT W/SENNA ALE/01716701/ [Concomitant]
     Dosage: 0.5G/DAY
     Route: 048
  7. FERROUS SODIUM CITRATE [Concomitant]
     Active Substance: SODIUM FERROUS CITRATE
     Dosage: 50MG/DAY
     Route: 048

REACTIONS (5)
  - Atrioventricular block first degree [Recovered/Resolved]
  - Hypermagnesaemia [Recovered/Resolved]
  - Hyperkalaemia [Recovered/Resolved]
  - Atrioventricular block complete [Recovered/Resolved]
  - Renal impairment [Unknown]
